FAERS Safety Report 11022053 (Version 4)
Quarter: 2015Q4

REPORT INFORMATION
  Report Type: Spontaneous
  Country: JP (occurrence: JP)
  Receive Date: 20150413
  Receipt Date: 20151030
  Transmission Date: 20160304
  Serious: Yes (Death)
  Sender: FDA-Public Use
  Company Number: PHJP2015JP005744

PATIENT
  Age: 36 Year
  Sex: Male
  Weight: 68 kg

DRUGS (14)
  1. PREDONINE [Concomitant]
     Active Substance: PREDNISOLONE\PREDNISOLONE ACETATE\PREDNISOLONE SODIUM SUCCINATE
     Indication: MULTIPLE SCLEROSIS
     Dosage: 2 MG, QD
     Route: 048
     Dates: start: 201107
  2. TAKEPRON [Concomitant]
     Active Substance: LANSOPRAZOLE
     Indication: PROPHYLAXIS
     Dosage: 30 MG, QD
     Route: 048
     Dates: start: 201107
  3. GILENYA [Suspect]
     Active Substance: FINGOLIMOD HYDROCHLORIDE
     Indication: MULTIPLE SCLEROSIS
     Dosage: 0.5 MG, QD
     Route: 048
     Dates: start: 20150210
  4. SELBEX [Concomitant]
     Active Substance: TEPRENONE
     Indication: PROPHYLAXIS
     Dosage: 50 MG, TID
     Route: 048
     Dates: start: 201107
  5. EDIROL [Concomitant]
     Active Substance: ELDECALCITOL
     Indication: MULTIPLE SCLEROSIS
     Dosage: 0.75 UG, QD
     Route: 048
     Dates: start: 20121214
  6. KAYTWO [Concomitant]
     Active Substance: MENATETRENONE
     Indication: PROPHYLAXIS
     Dosage: 5 MG, TID
     Route: 048
     Dates: start: 20130906
  7. TYSABRI [Suspect]
     Active Substance: NATALIZUMAB
     Indication: MULTIPLE SCLEROSIS
     Dosage: 300 MG, TID
     Route: 041
     Dates: start: 20140807, end: 20141006
  8. MEILAX [Concomitant]
     Active Substance: ETHYL LOFLAZEPATE
     Indication: PRODUCT USED FOR UNKNOWN INDICATION
     Dosage: 1 MG, UNK
     Route: 065
  9. PREDONINE [Concomitant]
     Active Substance: PREDNISOLONE\PREDNISOLONE ACETATE\PREDNISOLONE SODIUM SUCCINATE
     Dosage: 5 MG, UNK
     Route: 048
  10. QUETIAPINE [Concomitant]
     Active Substance: QUETIAPINE
     Indication: MOOD DISORDER DUE TO A GENERAL MEDICAL CONDITION
     Dosage: 25 MG, QD
     Route: 048
     Dates: start: 20141107, end: 20150322
  11. PAXIL [Concomitant]
     Active Substance: PAROXETINE HYDROCHLORIDE
     Indication: PRODUCT USED FOR UNKNOWN INDICATION
     Dosage: 12.5 MG, UNK
     Route: 048
     Dates: start: 20141021
  12. GOODMIN [Concomitant]
     Active Substance: BROTIZOLAM
     Indication: SLEEP DISORDER
     Dosage: 0.25 MG, UNK
     Route: 048
     Dates: start: 20141202
  13. TYSABRI [Suspect]
     Active Substance: NATALIZUMAB
     Dosage: 300 MG, QD
     Route: 041
     Dates: start: 20141203, end: 20150114
  14. QUETIAPINE [Concomitant]
     Active Substance: QUETIAPINE
     Dosage: 125 MG, QD
     Route: 048
     Dates: start: 20150323

REACTIONS (4)
  - Haemorrhage [Fatal]
  - Contusion [Fatal]
  - Completed suicide [Fatal]
  - Thinking abnormal [Unknown]

NARRATIVE: CASE EVENT DATE: 20150403
